FAERS Safety Report 4679572-8 (Version None)
Quarter: 2005Q2

REPORT INFORMATION
  Report Type: 
  Country: None (occurrence: None)
  Receive Date: 20050531
  Receipt Date: 20050518
  Transmission Date: 20051028
  Serious: Yes (Life-Threatening, Congenital Anomaly, Other)
  Sender: FDA-Public Use
  Company Number: 805#1#2005-00047

PATIENT
  Age: 2 Day
  Sex: Male

DRUGS (8)
  1. PROSTANDIN                                             (ALPROSTADIL (P [Suspect]
     Indication: CARDIAC DISORDER
     Dosage: SEE IMAGE, INTRAVENOUS DRIP
     Route: 041
     Dates: start: 20041225, end: 20041225
  2. PROSTANDIN                                             (ALPROSTADIL (P [Suspect]
     Indication: CARDIAC DISORDER
     Dosage: SEE IMAGE, INTRAVENOUS DRIP
     Route: 041
     Dates: start: 20041225, end: 20041225
  3. PROSTANDIN                                             (ALPROSTADIL (P [Suspect]
     Indication: CARDIAC DISORDER
     Dosage: SEE IMAGE, INTRAVENOUS DRIP
     Route: 041
     Dates: start: 20041225, end: 20041225
  4. PROSTANDIN                                             (ALPROSTADIL (P [Suspect]
     Indication: CARDIAC DISORDER
     Dosage: SEE IMAGE, INTRAVENOUS DRIP
     Route: 041
     Dates: start: 20041226, end: 20041226
  5. PROSTANDIN                                             (ALPROSTADIL (P [Suspect]
     Indication: CARDIAC DISORDER
     Dosage: SEE IMAGE, INTRAVENOUS DRIP
     Route: 041
     Dates: start: 20041226, end: 20050102
  6. DOPAMINE HCL [Concomitant]
  7. METHOXAMINE-HYDROCHLORIDE [Concomitant]
     Dates: start: 20041226, end: 20041226
  8. DOBUTAMINE HCL [Concomitant]
     Dates: start: 20041226, end: 20041226

REACTIONS (2)
  - GENERAL PHYSICAL CONDITION ABNORMAL [None]
  - NEONATAL APNOEIC ATTACK [None]
